FAERS Safety Report 4771491-1 (Version None)
Quarter: 2005Q3

REPORT INFORMATION
  Report Type: 
  Country: None (occurrence: None)
  Receive Date: 20050914
  Receipt Date: 20050914
  Transmission Date: 20060218
  Serious: Yes (Death, Life-Threatening)
  Sender: FDA-Public Use
  Company Number: None

PATIENT
  Age: 53 Year
  Sex: Male

DRUGS (1)
  1. FENTANYL [Suspect]
     Indication: BACK DISORDER
     Dosage: 50 MG,  25 MG
     Dates: start: 20010101, end: 20040101

REACTIONS (1)
  - DEATH [None]
